FAERS Safety Report 6992790-9 (Version None)
Quarter: 2010Q3

REPORT INFORMATION
  Report Type: 
  Country: None (occurrence: None)
  Receive Date: 20100917
  Receipt Date: 20100913
  Transmission Date: 20110219
  Serious: Yes (Other)
  Sender: FDA-Public Use
  Company Number: A0880835A

PATIENT
  Sex: Female

DRUGS (4)
  1. LANOXIN [Suspect]
     Indication: ATRIAL FIBRILLATION
     Dosage: .125MG AT NIGHT
     Route: 048
     Dates: start: 20070101
  2. VITAMINS [Concomitant]
  3. CALCIUM [Concomitant]
  4. WARFARIN SODIUM [Concomitant]

REACTIONS (8)
  - ANXIETY [None]
  - CATARACT [None]
  - CATARACT OPERATION [None]
  - DIPLOPIA [None]
  - EXTRASYSTOLES [None]
  - EYE DISORDER [None]
  - OPTIC ATROPHY [None]
  - VISUAL IMPAIRMENT [None]
